FAERS Safety Report 11511148 (Version 2)
Quarter: 2015Q3

REPORT INFORMATION
  Report Type: Spontaneous
  Country: US (occurrence: US)
  Receive Date: 20150915
  Receipt Date: 20150916
  Transmission Date: 20151125
  Serious: Yes (Other)
  Sender: FDA-Public Use
  Company Number: US-PFIZER INC-2015306930

PATIENT
  Age: 63 Year
  Sex: Female
  Weight: 104.76 kg

DRUGS (10)
  1. ARMOUR THYROID [Suspect]
     Active Substance: THYROID, PORCINE\THYROID, UNSPECIFIED
     Dosage: UNK
  2. LEVOTHYROXINE. [Concomitant]
     Active Substance: LEVOTHYROXINE
     Dosage: UNK
  3. LYRICA [Interacting]
     Active Substance: PREGABALIN
     Indication: PAIN
  4. ALLEGRA [Suspect]
     Active Substance: FEXOFENADINE HYDROCHLORIDE
     Dosage: UNK
  5. TRIAMTERENE. [Concomitant]
     Active Substance: TRIAMTERENE
     Dosage: UNK
  6. METFORMIN [Concomitant]
     Active Substance: METFORMIN HYDROCHLORIDE
     Dosage: UNK
  7. TRIEST [Suspect]
     Active Substance: ESTRADIOL\ESTRIOL\ESTRONE
     Dosage: UNK
  8. LYRICA [Interacting]
     Active Substance: PREGABALIN
     Indication: TARSAL TUNNEL SYNDROME
     Dosage: 50 MG, 4X/DAY
     Dates: start: 2006
  9. LYRICA [Interacting]
     Active Substance: PREGABALIN
     Indication: NEUROPATHY PERIPHERAL
  10. PROTONIX [Suspect]
     Active Substance: PANTOPRAZOLE SODIUM
     Dosage: UNK

REACTIONS (5)
  - Product use issue [Unknown]
  - Diabetes mellitus [Not Recovered/Not Resolved]
  - Dry mouth [Unknown]
  - Drug interaction [Unknown]
  - Weight increased [Unknown]

NARRATIVE: CASE EVENT DATE: 20060505
